FAERS Safety Report 5514666-6 (Version None)
Quarter: 2007Q4

REPORT INFORMATION
  Report Type: 
  Country: None (occurrence: None)
  Receive Date: 20071113
  Receipt Date: 20071101
  Transmission Date: 20080405
  Serious: Yes (Other)
  Sender: FDA-Public Use
  Company Number: US-PFIZER INC-2007093368

PATIENT
  Sex: Female
  Weight: 56.818 kg

DRUGS (7)
  1. CHANTIX [Suspect]
     Indication: SMOKING CESSATION THERAPY
     Dosage: FREQ:EVERYDAY
     Route: 048
  2. INSULIN [Concomitant]
  3. ACIPHEX [Concomitant]
  4. GLUCOPHAGE [Concomitant]
  5. NIFEREX [Concomitant]
  6. LEVOXYL [Concomitant]
     Indication: THYROID DISORDER
  7. VYTORIN [Concomitant]

REACTIONS (3)
  - BLOOD GLUCOSE ABNORMAL [None]
  - INSOMNIA [None]
  - SENSATION OF HEAVINESS [None]
